FAERS Safety Report 16458236 (Version 1)
Quarter: 2019Q2

REPORT INFORMATION
  Report Type: Spontaneous
  Country: US (occurrence: US)
  Receive Date: 20190620
  Receipt Date: 20190620
  Transmission Date: 20190711
  Serious: No
  Sender: FDA-Public Use
  Company Number: US-PFIZER INC-2019260855

PATIENT
  Age: 64 Year
  Sex: Female
  Weight: 89.81 kg

DRUGS (1)
  1. VENLAFAXINE HCL [Suspect]
     Active Substance: VENLAFAXINE HYDROCHLORIDE
     Dosage: UNK

REACTIONS (5)
  - Anxiety [Unknown]
  - Asthenia [Unknown]
  - Depression [Unknown]
  - Fatigue [Unknown]
  - Drug ineffective [Unknown]
